FAERS Safety Report 6372946-9 (Version None)
Quarter: 2009Q3

REPORT INFORMATION
  Report Type: 
  Country: None (occurrence: None)
  Receive Date: 20090924
  Receipt Date: 20081209
  Transmission Date: 20100115
  Serious: No
  Sender: FDA-Public Use
  Company Number: US-ASTRAZENECA-2008UW27679

PATIENT
  Age: 40 Year
  Sex: Female

DRUGS (4)
  1. SEROQUEL [Suspect]
     Indication: BIPOLAR DISORDER
     Dosage: DIVIDED DOSE
     Route: 048
     Dates: start: 19970101
  2. ATARAX [Concomitant]
  3. ANAFRANIL [Concomitant]
  4. TRAZODONE HCL [Concomitant]

REACTIONS (5)
  - GALLBLADDER POLYP [None]
  - HEPATIC STEATOSIS [None]
  - HYPERTENSION [None]
  - OEDEMA PERIPHERAL [None]
  - WEIGHT INCREASED [None]
